FAERS Safety Report 10039281 (Version 2)
Quarter: 2014Q3

REPORT INFORMATION
  Report Type: Report from Study
  Country: BR (occurrence: BR)
  Receive Date: 20140326
  Receipt Date: 20140717
  Transmission Date: 20150326
  Serious: Yes (Death)
  Sender: FDA-Public Use
  Company Number: PHHY2014BR034897

PATIENT
  Age: 73 Year
  Sex: Male

DRUGS (11)
  1. CALCIUM SANDOZ (CALCIUM CARBONATE\CALCIUM LACTATE GLUCONATE) [Suspect]
     Active Substance: CALCIUM CARBONATE\CALCIUM LACTATE GLUCONATE
     Dosage: UNK UKN, UNK
  2. OPTI FREE [Suspect]
     Active Substance: PANCRELIPASE\TYROSINE
     Dosage: UNK UKN, UNK
  3. SPIRIVA [Suspect]
     Active Substance: TIOTROPIUM BROMIDE MONOHYDRATE
     Dosage: UNK UKN, UNK
  4. FORASEQ [Suspect]
     Active Substance: BUDESONIDE\FORMOTEROL FUMARATE
     Dosage: UNK UKN, UNK
  5. CATAFLAM [Suspect]
     Active Substance: DICLOFENAC POTASSIUM
     Dosage: 6 TO 11 MG, UNK
  6. BENEFIBER [Suspect]
     Active Substance: STARCH, WHEAT
     Dosage: 3 TO 5 MG, UNK
  7. FLUIR [Suspect]
     Active Substance: FORMOTEROL FUMARATE
     Dosage: UNK UKN, UNK
  8. FORADIL [Suspect]
     Active Substance: FORMOTEROL FUMARATE
     Dosage: UNK UKN, UNK
  9. NICOTINELL [Suspect]
     Active Substance: NICOTINE
     Dosage: 21 MG, UNK
  10. VENORUTON [Suspect]
     Active Substance: TROXERUTIN
     Dosage: 50 MG, UNK
  11. BECLORT [Suspect]
     Active Substance: BECLOMETHASONE DIPROPIONATE
     Dosage: UNK UKN, UNK

REACTIONS (1)
  - Death [Fatal]

NARRATIVE: CASE EVENT DATE: 20120115
